FAERS Safety Report 4685772-3 (Version None)
Quarter: 2005Q2

REPORT INFORMATION
  Report Type: 
  Country: None (occurrence: None)
  Receive Date: 20050607
  Receipt Date: 20050607
  Transmission Date: 20051028
  Serious: Yes (Hospitalization)
  Sender: FDA-Public Use
  Company Number: None

PATIENT
  Age: 54 Year
  Sex: Male

DRUGS (2)
  1. TRAZADONE [Suspect]
  2. ALCOHOL [Suspect]

REACTIONS (2)
  - ALCOHOL USE [None]
  - INTENTIONAL MISUSE [None]
